FAERS Safety Report 7511983-5 (Version None)
Quarter: 2011Q2

REPORT INFORMATION
  Report Type: 
  Country: None (occurrence: None)
  Receive Date: 20110531
  Receipt Date: 20110519
  Transmission Date: 20111010
  Serious: Yes (Other)
  Sender: FDA-Public Use
  Company Number: PHHY2010JP72780

PATIENT
  Sex: Female

DRUGS (4)
  1. CEFAZOLIN SODIUM [Concomitant]
     Dosage: 03 DF, UNK
     Route: 048
     Dates: start: 20100325, end: 20100925
  2. RED BLOOD CELLS, LEUCOCYTE DEPLETED [Concomitant]
     Dosage: 02 UNITS EVERY 02 WEEKS
     Dates: start: 20100401, end: 20100913
  3. SULFAMETHOXAZOLE [Concomitant]
     Dosage: 01 DF, UNK
     Dates: start: 20100325, end: 20100925
  4. EXJADE [Suspect]
     Indication: MYELOFIBROSIS
     Dosage: 500 MG DAILY
     Route: 048
     Dates: start: 20100325

REACTIONS (4)
  - ASPARTATE AMINOTRANSFERASE INCREASED [None]
  - ALANINE AMINOTRANSFERASE INCREASED [None]
  - BLOOD LACTATE DEHYDROGENASE INCREASED [None]
  - HAEMOGLOBIN DECREASED [None]
